FAERS Safety Report 8520878-X (Version None)
Quarter: 2012Q3

REPORT INFORMATION
  Report Type: 
  Country: None (occurrence: None)
  Receive Date: 20120719
  Receipt Date: 20120710
  Transmission Date: 20120928
  Serious: Yes (Hospitalization)
  Sender: FDA-Public Use
  Company Number: US-JNJFOC-20120704858

PATIENT
  Sex: Male
  Weight: 70.31 kg

DRUGS (4)
  1. ACECOL [Concomitant]
     Indication: COLITIS
     Route: 065
  2. REMICADE [Suspect]
     Indication: COLITIS ULCERATIVE
     Route: 042
     Dates: start: 20120101
  3. PREDNISONE [Concomitant]
     Indication: COLITIS
     Route: 065
  4. AZATHIOPRINE [Suspect]
     Indication: COLITIS ULCERATIVE
     Route: 065
     Dates: end: 20120101

REACTIONS (3)
  - COLITIS ULCERATIVE [None]
  - IMMUNE SYSTEM DISORDER [None]
  - PNEUMONIA [None]
